FAERS Safety Report 8973921 (Version 1)
Quarter: 2012Q4

REPORT INFORMATION
  Report Type: Report from Study
  Country: DE (occurrence: DE)
  Receive Date: 20121218
  Receipt Date: 20121218
  Transmission Date: 20130627
  Serious: Yes (Life-Threatening, Hospitalization)
  Sender: FDA-Public Use
  Company Number: DE-GLAXOSMITHKLINE-B0853179A

PATIENT
  Sex: Female
  Weight: 63 kg

DRUGS (5)
  1. LAPATINIB [Suspect]
     Indication: BREAST CANCER
     Dosage: 750MG Per day
     Route: 048
     Dates: start: 20121011
  2. TRASTUZUMAB [Suspect]
     Indication: BREAST CANCER
     Dosage: 6MGK Cyclic
     Route: 042
     Dates: start: 20121010
  3. PACLITAXEL [Suspect]
     Indication: BREAST CANCER
     Dosage: 80MGM2 Weekly
     Route: 042
     Dates: start: 20121011
  4. MYOCET [Suspect]
     Indication: BREAST CANCER
     Dosage: 20MGM2 Weekly
     Route: 042
     Dates: start: 20121011
  5. FILGRASTIM [Concomitant]
     Dates: start: 20121116

REACTIONS (1)
  - Sepsis [Not Recovered/Not Resolved]
